FAERS Safety Report 8616834-3 (Version None)
Quarter: 2012Q3

REPORT INFORMATION
  Report Type: 
  Country: None (occurrence: None)
  Receive Date: 20120823
  Receipt Date: 20120809
  Transmission Date: 20120928
  Serious: Yes (Other)
  Sender: FDA-Public Use
  Company Number: JP-VERTEX PHARMACEUTICAL INC.-AE-2012-004521

PATIENT
  Age: 50 Year
  Sex: Male

DRUGS (13)
  1. RIBAVIRIN [Concomitant]
     Dosage: 600 MG, QD
     Route: 048
     Dates: start: 20120320
  2. RIBAVIRIN [Concomitant]
     Dosage: 800 MG, QD
     Route: 048
     Dates: start: 20120626, end: 20120723
  3. MICARDIS [Concomitant]
     Route: 048
  4. PEGINTERFERON ALFA-2A [Concomitant]
     Indication: HEPATITIS C
     Route: 058
     Dates: start: 20120207, end: 20120220
  5. RIBAVIRIN [Concomitant]
     Indication: HEPATITIS C
     Dosage: 800 MG, QD
     Route: 048
     Dates: start: 20120207, end: 20120220
  6. RIBAVIRIN [Concomitant]
     Dosage: 200 MG, QD
     Route: 048
  7. RIBAVIRIN [Concomitant]
     Dosage: 400 MG, QD
     Route: 048
     Dates: start: 20120529, end: 20120625
  8. RIBAVIRIN [Concomitant]
     Dosage: 600 MG, QD
     Route: 048
     Dates: start: 20120221
  9. VX-950 [Suspect]
     Indication: HEPATITIS C
     Dosage: 2250 MG, QD
     Route: 048
     Dates: start: 20120207
  10. FEBURIC [Concomitant]
     Route: 048
  11. PEGINTERFERON ALFA-2A [Concomitant]
     Dosage: 0.6 A?G/KG, UNK
     Route: 058
     Dates: start: 20120221, end: 20120717
  12. RIBAVIRIN [Concomitant]
     Dosage: 400 MG, QD
     Route: 048
     Dates: start: 20120327
  13. MICARDIS [Concomitant]
     Route: 048
     Dates: end: 20120717

REACTIONS (1)
  - NEUTROPHIL COUNT DECREASED [None]
